FAERS Safety Report 4362652-4 (Version None)
Quarter: 2004Q2

REPORT INFORMATION
  Report Type: 
  Country: None (occurrence: None)
  Receive Date: 20040524
  Receipt Date: 20040510
  Transmission Date: 20050107
  Serious: Yes (Other)
  Sender: FDA-Public Use
  Company Number: NL-JNJFOC-20040501554

PATIENT
  Sex: Male

DRUGS (1)
  1. DAKTARIN [Suspect]
     Dosage: 0.5 MEASURING SPOON
     Route: 049

REACTIONS (2)
  - NEONATAL DISORDER [None]
  - SUFFOCATION FEELING [None]
